FAERS Safety Report 5644285-2 (Version None)
Quarter: 2008Q1

REPORT INFORMATION
  Report Type: 
  Country: None (occurrence: None)
  Receive Date: 20080229
  Receipt Date: 20080220
  Transmission Date: 20080703
  Serious: Yes (Other)
  Sender: FDA-Public Use
  Company Number: PHBS2008IL02663

PATIENT
  Age: 30 Year
  Sex: Female

DRUGS (2)
  1. SANDOSTATIN LAR [Suspect]
     Indication: CARCINOID TUMOUR
     Dosage: 20 MG EVERY 4 WEEKS
  2. ELTROXIN [Concomitant]
     Indication: THYROIDITIS

REACTIONS (1)
  - BLOOD THYROID STIMULATING HORMONE INCREASED [None]
